FAERS Safety Report 12399104 (Version 3)
Quarter: 2016Q2

REPORT INFORMATION
  Report Type: Report from Study
  Country: GB (occurrence: GB)
  Receive Date: 20160524
  Receipt Date: 20160615
  Transmission Date: 20160815
  Serious: Yes (Life-Threatening, Hospitalization, Other)
  Sender: FDA-Public Use
  Company Number: GB-MDT-ADR-2016-00926

PATIENT
  Age: 56 Year
  Sex: Male

DRUGS (31)
  1. ASPIRIN. [Concomitant]
     Active Substance: ASPIRIN
     Dosage: 75MG QD
     Route: 048
     Dates: start: 20081001, end: 20110530
  2. ASPIRIN. [Concomitant]
     Active Substance: ASPIRIN
     Dosage: 75MG QD
     Route: 048
     Dates: start: 20110101
  3. LIORESAL [Suspect]
     Active Substance: BACLOFEN
     Dosage: 74.95MCG/DAY
     Route: 037
     Dates: start: 20110711, end: 20110714
  4. LIORESAL [Suspect]
     Active Substance: BACLOFEN
     Dosage: 99.93MCG/DAY
     Route: 037
     Dates: start: 20110607, end: 20110609
  5. SIMVASTATIN. [Concomitant]
     Active Substance: SIMVASTATIN
     Dosage: 40MG QD
     Route: 048
     Dates: start: 20081001
  6. BACLOFEN. [Concomitant]
     Active Substance: BACLOFEN
     Dosage: 30MG TID
     Route: 048
     Dates: start: 20090301, end: 20110627
  7. LIORESAL [Suspect]
     Active Substance: BACLOFEN
     Dosage: 65.08MCG/DAY
     Route: 037
     Dates: start: 20110630, end: 20110707
  8. SITAGLIPTIN [Concomitant]
     Active Substance: SITAGLIPTIN
     Dosage: 50MG QD
     Route: 048
     Dates: start: 20110401
  9. FOLIC ACID. [Concomitant]
     Active Substance: FOLIC ACID
     Dosage: 5MG QD
     Route: 048
     Dates: start: 20081001
  10. MORPHINE [Concomitant]
     Active Substance: MORPHINE
     Dosage: PRN
     Route: 042
     Dates: start: 20110607, end: 20110607
  11. LIORESAL [Suspect]
     Active Substance: BACLOFEN
     Dosage: 69.8MCG/DAY
     Route: 037
     Dates: start: 20110714, end: 20110823
  12. DIPYRIDAMOLE. [Concomitant]
     Active Substance: DIPYRIDAMOLE
     Dosage: 200MG BID
     Route: 048
     Dates: start: 20081009
  13. LIORESAL [Suspect]
     Active Substance: BACLOFEN
     Dosage: 55MCG/DAY
     Route: 037
     Dates: start: 20110616, end: 20110620
  14. LIORESAL [Suspect]
     Active Substance: BACLOFEN
     Dosage: 60.04MCG/DAY
     Route: 037
     Dates: start: 20110620, end: 20110630
  15. LIORESAL [Suspect]
     Active Substance: BACLOFEN
     Dosage: 76.93MCG/DAY
     Route: 037
     Dates: start: 20110830, end: 20110908
  16. LIORESAL [Suspect]
     Active Substance: BACLOFEN
     Dosage: 49.96MCG/DAY
     Route: 037
     Dates: start: 20110613, end: 20110616
  17. METFORMIN [Concomitant]
     Active Substance: METFORMIN HYDROCHLORIDE
     Dosage: 1000MG BID
     Route: 048
     Dates: start: 20090101
  18. TIZANIDINE. [Concomitant]
     Active Substance: TIZANIDINE
     Dosage: 4MG TID
     Route: 048
     Dates: start: 20100501, end: 20110627
  19. RAMIPRIL. [Concomitant]
     Active Substance: RAMIPRIL
     Dosage: 10MG QD
     Route: 048
     Dates: start: 20081101
  20. CYCLIZINE [Concomitant]
     Active Substance: CYCLIZINE
     Dosage: PRN
     Route: 048
     Dates: start: 20110517, end: 20110613
  21. LIORESAL [Suspect]
     Active Substance: BACLOFEN
     Dosage: 60.04MCG/DAY
     Route: 037
     Dates: start: 20110609, end: 20110613
  22. DIPYRIDAMOLE MR [Concomitant]
     Active Substance: DIPYRIDAMOLE
     Dosage: 200MG BID
     Route: 048
     Dates: start: 20081001, end: 20110531
  23. SODIUM CHLORIDE. [Concomitant]
     Active Substance: SODIUM CHLORIDE
     Dosage: 1000ML OVER 8 HOURS
     Route: 042
     Dates: start: 20110607, end: 20110607
  24. SALBUTAMOL [Concomitant]
     Active Substance: ALBUTEROL
     Dosage: 2 PUFFS PRN
     Route: 055
     Dates: start: 20110530
  25. SENNA [Concomitant]
     Active Substance: SENNA LEAF\SENNOSIDES\SENNOSIDES A AND B
     Route: 048
     Dates: start: 20110608, end: 20110609
  26. LAXIDO [Concomitant]
     Active Substance: POLYETHYLENE GLYCOL 3350\POTASSIUM CHLORIDE\SODIUM BICARBONATE\SODIUM CHLORIDE
     Route: 048
     Dates: start: 20110608, end: 20110609
  27. LIORESAL [Suspect]
     Active Substance: BACLOFEN
     Dosage: 69.98MCG/DAY
     Route: 037
     Dates: start: 20110707, end: 20110711
  28. LIORESAL [Suspect]
     Active Substance: BACLOFEN
     Route: 037
     Dates: start: 20110823, end: 20110830
  29. VITIMIN B STRONG COMPLEX [Concomitant]
     Active Substance: NIACINAMIDE\PYRIDOXINE\RIBOFLAVIN\THIAMINE
     Dosage: 1 TABLET QD
     Route: 048
     Dates: start: 20081001
  30. COCODAMOL [Concomitant]
     Active Substance: ACETAMINOPHEN\CODEINE PHOSPHATE
     Dosage: 2 TABLETS PRN
     Route: 048
     Dates: start: 20100101
  31. LIORESAL [Suspect]
     Active Substance: BACLOFEN
     Dosage: 70MCG/DAY
     Route: 037
     Dates: start: 20110908

REACTIONS (15)
  - Muscular weakness [Recovered/Resolved]
  - Postoperative ileus [Recovered/Resolved]
  - Asthenia [Recovered/Resolved]
  - Constipation [Recovered/Resolved]
  - Muscular weakness [Recovered/Resolved]
  - Back pain [Recovered/Resolved with Sequelae]
  - Vomiting [Recovered/Resolved]
  - Nerve compression [Recovered/Resolved]
  - Musculoskeletal pain [Recovered/Resolved]
  - Hypotonia [Recovered/Resolved]
  - Urinary incontinence [Recovered/Resolved]
  - Muscle spasticity [Recovered/Resolved]
  - Hemiparesis [Recovered/Resolved]
  - Hypotension [Recovered/Resolved]
  - Asthenia [Recovered/Resolved]

NARRATIVE: CASE EVENT DATE: 20110608
